APPROVED DRUG PRODUCT: MIDAZOLAM HYDROCHLORIDE
Active Ingredient: MIDAZOLAM HYDROCHLORIDE
Strength: EQ 5MG BASE/ML
Dosage Form/Route: INJECTABLE;INJECTION
Application: A075409 | Product #001
Applicant: HOSPIRA INC
Approved: Jun 20, 2000 | RLD: No | RS: No | Type: DISCN